FAERS Safety Report 9049643 (Version 1)
Quarter: 2013Q1

REPORT INFORMATION
  Report Type: Spontaneous
  Country: DE (occurrence: DE)
  Receive Date: 20130205
  Receipt Date: 20130205
  Transmission Date: 20140127
  Serious: Yes (Other)
  Sender: FDA-Public Use
  Company Number: DE-TEVA-381853GER

PATIENT
  Sex: 0

DRUGS (1)
  1. COPAXONE [Suspect]

REACTIONS (5)
  - Central nervous system lesion [Unknown]
  - Choking [Unknown]
  - Dysphagia [Unknown]
  - Speech disorder [Unknown]
  - Cough [Unknown]
